FAERS Safety Report 17257550 (Version 1)
Quarter: 2020Q1

REPORT INFORMATION
  Report Type: Spontaneous
  Country: US (occurrence: US)
  Receive Date: 20200109
  Receipt Date: 20200109
  Transmission Date: 20200409
  Serious: No
  Sender: FDA-Public Use
  Company Number: None

PATIENT
  Sex: Female

DRUGS (1)
  1. BEVACIZUMAB. [Suspect]
     Active Substance: BEVACIZUMAB
     Indication: NEOVASCULAR AGE-RELATED MACULAR DEGENERATION
     Dosage: ?          OTHER FREQUENCY:ONCE;OTHER ROUTE:INTRAVITREAL?
     Dates: start: 20191213, end: 20191213

REACTIONS (2)
  - Eye pain [None]
  - Eye inflammation [None]

NARRATIVE: CASE EVENT DATE: 20191213
